FAERS Safety Report 6190273-X (Version None)
Quarter: 2009Q2

REPORT INFORMATION
  Report Type: 
  Country: None (occurrence: None)
  Receive Date: 20090514
  Receipt Date: 20090501
  Transmission Date: 20091009
  Serious: Yes (Other)
  Sender: FDA-Public Use
  Company Number: US-BAYER-200918220NA

PATIENT
  Age: 17 Year
  Sex: Male

DRUGS (6)
  1. ULTRAVIST 300 [Suspect]
     Indication: COMPUTERISED TOMOGRAM ABDOMEN
     Dosage: AS USED: 120 ML  UNIT DOSE: 500 ML
     Route: 042
     Dates: start: 20090331, end: 20090331
  2. PREDNISONE [Concomitant]
     Indication: PREMEDICATION
     Route: 048
     Dates: start: 20090331
  3. PREDNISONE [Concomitant]
     Route: 048
     Dates: start: 20090331
  4. BENADRYL [Concomitant]
     Indication: PREMEDICATION
     Route: 048
     Dates: start: 20090331
  5. VOLUMEN [Concomitant]
     Indication: COMPUTERISED TOMOGRAM
     Route: 048
     Dates: start: 20090331
  6. ALBUTEROL [Concomitant]
     Indication: ASTHMA
     Route: 055

REACTIONS (7)
  - ANGIOEDEMA [None]
  - ARRHYTHMIA [None]
  - BURNING SENSATION [None]
  - DYSPNOEA [None]
  - ERYTHEMA [None]
  - SKIN SWELLING [None]
  - URTICARIA [None]
